FAERS Safety Report 15727046 (Version 2)
Quarter: 2019Q2

REPORT INFORMATION
  Report Type: Report from Study
  Country: DE (occurrence: DE)
  Receive Date: 20181217
  Receipt Date: 20190410
  Transmission Date: 20190711
  Serious: Yes (Hospitalization)
  Sender: FDA-Public Use
  Company Number: DE-ROCHE-2216954

PATIENT
  Age: 74 Year
  Sex: Female

DRUGS (8)
  1. TOCILIZUMAB. [Suspect]
     Active Substance: TOCILIZUMAB
     Indication: RHEUMATOID ARTHRITIS
     Route: 058
  2. LEVOTHYROXIN NATRIUM [Concomitant]
  3. OMEPRAZOL [Concomitant]
     Active Substance: OMEPRAZOLE
  4. RIVAROXABAN [Concomitant]
     Active Substance: RIVAROXABAN
  5. CANDESARTAN CILEXETIL. [Concomitant]
     Active Substance: CANDESARTAN CILEXETIL
  6. TORASEMID [Concomitant]
     Active Substance: TORSEMIDE
  7. URAPIDIL [Concomitant]
     Active Substance: URAPIDIL
  8. ATORVASTATIN [Concomitant]
     Active Substance: ATORVASTATIN

REACTIONS (6)
  - Atrial fibrillation [Recovered/Resolved]
  - Cardiac pacemaker insertion [Unknown]
  - Device capturing issue [Unknown]
  - Bradycardia [Unknown]
  - Cardiac disorder [Unknown]
  - Atrioventricular block [Unknown]

NARRATIVE: CASE EVENT DATE: 201810
